FAERS Safety Report 16731344 (Version 1)
Quarter: 2019Q3

REPORT INFORMATION
  Report Type: Spontaneous
  Country: US (occurrence: US)
  Receive Date: 20190822
  Receipt Date: 20190822
  Transmission Date: 20191005
  Serious: No
  Sender: FDA-Public Use
  Company Number: US-BAUSCH-BL-2019-023192

PATIENT
  Age: 41 Year
  Sex: Female

DRUGS (1)
  1. LUMIFY [Suspect]
     Active Substance: BRIMONIDINE TARTRATE
     Indication: OCULAR HYPERAEMIA
     Dosage: APPROXIMATELY 2 WEEKS AGO?1 DROP IN EACH EYE
     Route: 047
     Dates: start: 201907

REACTIONS (1)
  - Nasal discomfort [Unknown]

NARRATIVE: CASE EVENT DATE: 201907
